FAERS Safety Report 11411590 (Version 1)
Quarter: 2015Q3

REPORT INFORMATION
  Report Type: Spontaneous
  Country: US (occurrence: US)
  Receive Date: 20150821
  Receipt Date: 20150821
  Transmission Date: 20151125
  Serious: No
  Sender: FDA-Public Use
  Company Number: US-ELI_LILLY_AND_COMPANY-US201110004113

PATIENT
  Sex: Female

DRUGS (10)
  1. HUMULIN N [Suspect]
     Active Substance: INSULIN HUMAN
     Indication: TYPE 2 DIABETES MELLITUS
     Dosage: 44 U, EACH MORNING
     Dates: start: 2010
  2. HUMULIN N [Suspect]
     Active Substance: INSULIN HUMAN
     Dosage: 46 U, EACH EVENING
     Dates: start: 2010
  3. HUMULIN N [Suspect]
     Active Substance: INSULIN HUMAN
     Dosage: 44 U, EACH MORNING
     Dates: start: 2010
  4. HUMULIN N [Suspect]
     Active Substance: INSULIN HUMAN
     Dosage: 44 U, EACH MORNING
     Dates: start: 2010
  5. HUMULIN N [Suspect]
     Active Substance: INSULIN HUMAN
     Indication: TYPE 2 DIABETES MELLITUS
     Dosage: 44 U, EACH MORNING
     Dates: start: 2010
  6. HUMULIN N [Suspect]
     Active Substance: INSULIN HUMAN
     Dosage: 46 U, EACH EVENING
     Dates: start: 2010
  7. HUMULIN N [Suspect]
     Active Substance: INSULIN HUMAN
     Dosage: 46 U, EACH EVENING
     Dates: start: 2010
  8. HUMULIN N [Suspect]
     Active Substance: INSULIN HUMAN
     Dosage: 46 U, EACH EVENING
     Dates: start: 2010
  9. HUMULIN N [Suspect]
     Active Substance: INSULIN HUMAN
     Dosage: 46 U, EACH EVENING
     Dates: start: 2010
  10. HUMULIN N [Suspect]
     Active Substance: INSULIN HUMAN
     Dosage: 44 U, EACH MORNING
     Dates: start: 2010

REACTIONS (6)
  - Hypoaesthesia [Unknown]
  - Asthenia [Unknown]
  - Rash [Not Recovered/Not Resolved]
  - Paraesthesia [Unknown]
  - Hypersensitivity [Not Recovered/Not Resolved]
  - Fatigue [Unknown]
